FAERS Safety Report 22213772 (Version 2)
Quarter: 2023Q2

REPORT INFORMATION
  Report Type: Spontaneous
  Country: US (occurrence: US)
  Receive Date: 20230414
  Receipt Date: 20230525
  Transmission Date: 20230721
  Serious: Yes (Hospitalization, Other)
  Sender: FDA-Public Use
  Company Number: US-002147023-NVSC2023US085242

PATIENT

DRUGS (6)
  1. TRAMETINIB [Suspect]
     Active Substance: TRAMETINIB
     Indication: Metastatic malignant melanoma
     Dosage: 1 MG, QD (DL1)
     Route: 048
  2. TRAMETINIB [Suspect]
     Active Substance: TRAMETINIB
     Dosage: 2 MG, QD (DL2, DL3)
     Route: 048
  3. DABRAFENIB [Suspect]
     Active Substance: DABRAFENIB
     Indication: Metastatic malignant melanoma
     Dosage: 150 MG, BID
     Route: 048
  4. ONALESPIB [Suspect]
     Active Substance: ONALESPIB
     Indication: Metastatic malignant melanoma
     Dosage: 180 MG/M2 ON DAYS 1, 8, AND 15 (DL1, DL2)
     Route: 042
  5. ONALESPIB [Suspect]
     Active Substance: ONALESPIB
     Dosage: 220 MG/M2, ON DAYS 1, 8, AND 15 (DL3)
     Route: 042
  6. ONALESPIB [Suspect]
     Active Substance: ONALESPIB
     Dosage: UNK
     Route: 065

REACTIONS (3)
  - Fatigue [Recovering/Resolving]
  - Myelosuppression [Recovered/Resolved]
  - Product use issue [Unknown]
